FAERS Safety Report 9319418 (Version 1)
Quarter: 2013Q1

REPORT INFORMATION
  Report Type: Spontaneous
  Country: US (occurrence: None)
  Receive Date: 20121210
  Receipt Date: 20121210
  Transmission Date: 20140127
  Serious: Yes (Disabling, Other)
  Sender: FDA-Public Use
  Company Number: ACO_33181_2012

PATIENT
  Sex: Female

DRUGS (2)
  1. AMPYRA (DALFAMPRIDINE) TABLET [Suspect]
     Indication: PRODUCT USED FOR UNKNOWN INDICATION
     Dates: start: 20101019, end: 20121129
  2. COPAXONE (GLATIRAMER ACETATE) [Concomitant]

REACTIONS (1)
  - Abasia [None]
